FAERS Safety Report 6636974-8 (Version None)
Quarter: 2010Q1

REPORT INFORMATION
  Report Type: 
  Country: None (occurrence: None)
  Receive Date: 20100301
  Receipt Date: 20090310
  Transmission Date: 20100710
  Serious: Yes (Death, Hospitalization)
  Sender: FDA-Public Use
  Company Number: RB-3254-2006

PATIENT
  Age: 27 Year
  Sex: Male
  Weight: 73.4827 kg

DRUGS (10)
  1. SUBUTEX [Suspect]
     Indication: DRUG DEPENDENCE
     Dosage: 12 MG SUBLINGUAL; SEE IMAGE
     Route: 058
     Dates: start: 20060112, end: 20060112
  2. SUBUTEX [Suspect]
     Indication: DRUG DEPENDENCE
     Dosage: 12 MG SUBLINGUAL; SEE IMAGE
     Route: 058
     Dates: start: 20060113, end: 20060113
  3. SUBUTEX [Suspect]
     Indication: DRUG DEPENDENCE
     Dosage: 12 MG SUBLINGUAL; SEE IMAGE
     Route: 058
     Dates: start: 20060114, end: 20060114
  4. SUBUTEX [Suspect]
     Indication: DRUG DEPENDENCE
     Dosage: 12 MG SUBLINGUAL; SEE IMAGE
     Route: 058
     Dates: start: 20060115, end: 20060115
  5. PHENOBARBITAL TAB [Concomitant]
  6. CLONIDINE [Concomitant]
  7. IBUPROFEN [Concomitant]
  8. VISTARIL [Concomitant]
  9. TIGAN [Concomitant]
  10. TRIAZOLAM [Concomitant]

REACTIONS (2)
  - OVERDOSE [None]
  - PULMONARY CONGESTION [None]
